FAERS Safety Report 9779731 (Version 1)
Quarter: 2013Q4

REPORT INFORMATION
  Report Type: Spontaneous
  Country: US (occurrence: US)
  Receive Date: 20131223
  Receipt Date: 20131223
  Transmission Date: 20140711
  Serious: Yes (Other)
  Sender: FDA-Public Use
  Company Number: US-GLAXOSMITHKLINE-A1054137A

PATIENT
  Sex: Female

DRUGS (3)
  1. BECONASE [Suspect]
     Indication: SINUS HEADACHE
     Route: 045
  2. VALACYCLOVIR [Suspect]
     Indication: GENITAL HERPES
     Route: 048
  3. VALTREX [Suspect]
     Indication: GENITAL HERPES
     Dosage: 1G AS REQUIRED
     Route: 048
     Dates: start: 2005

REACTIONS (9)
  - Adrenal insufficiency [Unknown]
  - Feeling abnormal [Recovered/Resolved]
  - Disturbance in attention [Recovered/Resolved]
  - Headache [Recovered/Resolved]
  - Initial insomnia [Recovered/Resolved]
  - Drug ineffective [Unknown]
  - Drug hypersensitivity [Unknown]
  - Sinus headache [Unknown]
  - Inflammation [Unknown]
